FAERS Safety Report 4759886-3 (Version None)
Quarter: 2005Q3

REPORT INFORMATION
  Report Type: 
  Country: None (occurrence: None)
  Receive Date: 20050902
  Receipt Date: 20050707
  Transmission Date: 20060218
  Serious: Yes (Hospitalization)
  Sender: FDA-Public Use
  Company Number: HU-BOEHRINGER INGELHEIM PHARMACEUTICALS, INC.-2005-DE-02656DE

PATIENT
  Sex: Male
  Weight: 85 kg

DRUGS (14)
  1. MICARDIS [Suspect]
     Indication: HYPERTENSION
     Route: 048
  2. MICARDIS HCT [Suspect]
     Indication: HYPERTENSION
     Dosage: STRENGHT 80 MG TELMISARTAN, 12,5 MG HCT
     Route: 048
  3. ASPIRIN 100 [Concomitant]
  4. RYTHMOL [Concomitant]
     Indication: EXTRASYSTOLES
  5. RYTHMOL [Concomitant]
     Indication: ARRHYTHMIA
  6. MOTILIUM [Concomitant]
  7. ATENOLOL [Concomitant]
  8. MOTILIUM [Concomitant]
     Indication: STOMACH DISCOMFORT
     Dosage: PRN
  9. PREDUCTAL [Concomitant]
  10. DHEA [Concomitant]
  11. CENTRUM 50 [Concomitant]
  12. TEBONIN [Concomitant]
  13. OMEGA 3 [Concomitant]
  14. VITAMIN E [Concomitant]

REACTIONS (4)
  - BLOOD PRESSURE FLUCTUATION [None]
  - BLOOD PRESSURE INCREASED [None]
  - EXTRASYSTOLES [None]
  - OEDEMA PERIPHERAL [None]
